FAERS Safety Report 13938886 (Version 1)
Quarter: 2017Q3

REPORT INFORMATION
  Report Type: Spontaneous
  Country: US (occurrence: None)
  Receive Date: 20170905
  Receipt Date: 20170905
  Transmission Date: 20171127
  Serious: Yes (Other)
  Sender: FDA-Public Use
  Company Number: None

PATIENT
  Sex: Female
  Weight: 60.33 kg

DRUGS (1)
  1. NEXPLANON [Suspect]
     Active Substance: ETONOGESTREL
     Dates: start: 20170807, end: 20170816

REACTIONS (5)
  - Peripheral swelling [None]
  - Infection [None]
  - Impaired work ability [None]
  - Neoplasm [None]
  - Feeling cold [None]

NARRATIVE: CASE EVENT DATE: 20170807
